FAERS Safety Report 6677759-6 (Version None)
Quarter: 2010Q2

REPORT INFORMATION
  Report Type: 
  Country: None (occurrence: None)
  Receive Date: 20100412
  Receipt Date: 20100113
  Transmission Date: 20101027
  Serious: No
  Sender: FDA-Public Use
  Company Number: US-ALEXION-A200900797

PATIENT
  Sex: Male

DRUGS (7)
  1. SOLIRIS [Suspect]
     Indication: PAROXYSMAL NOCTURNAL HAEMOGLOBINURIA
     Dosage: 600 MG, WEEKLY FOR 4 WEEKS
     Route: 042
     Dates: start: 20090918, end: 20091009
  2. SOLIRIS [Suspect]
     Dosage: 900 MG, WEEKLY EVERY 2 WEEKS
     Route: 042
     Dates: start: 20091016
  3. RITUXAN [Concomitant]
     Indication: B-CELL LYMPHOMA
  4. ETOPOSIDE [Concomitant]
     Indication: B-CELL LYMPHOMA
  5. SOLU-MEDROL [Concomitant]
     Indication: B-CELL LYMPHOMA
  6. ARA-C [Concomitant]
     Indication: B-CELL LYMPHOMA
  7. PLATINOL [Concomitant]
     Indication: B-CELL LYMPHOMA

REACTIONS (3)
  - HAEMOGLOBIN DECREASED [None]
  - HEADACHE [None]
  - PYREXIA [None]
